FAERS Safety Report 22781718 (Version 2)
Quarter: 2023Q4

REPORT INFORMATION
  Report Type: Spontaneous
  Country: GB (occurrence: GB)
  Receive Date: 20230803
  Receipt Date: 20231020
  Transmission Date: 20240110
  Serious: Yes (Other)
  Sender: FDA-Public Use
  Company Number: GB-PHARMAESSENTIA-GB-2023-PEC-001827

PATIENT
  Sex: Male

DRUGS (7)
  1. BESREMI [Suspect]
     Active Substance: ROPEGINTERFERON ALFA-2B-NJFT
     Indication: Product used for unknown indication
     Dosage: 250 MICROGRAM, Q2W
     Route: 064
     Dates: start: 2022
  2. BESREMI [Suspect]
     Active Substance: ROPEGINTERFERON ALFA-2B-NJFT
     Dosage: 300 MICROGRAM, Q2W
     Route: 064
     Dates: start: 2022
  3. BESREMI [Suspect]
     Active Substance: ROPEGINTERFERON ALFA-2B-NJFT
     Dosage: 350 MICROGRAM, Q2W
     Route: 064
     Dates: start: 2022
  4. BESREMI [Suspect]
     Active Substance: ROPEGINTERFERON ALFA-2B-NJFT
     Dosage: 400 MICROGRAM, Q2W
     Route: 064
     Dates: start: 2022
  5. BESREMI [Suspect]
     Active Substance: ROPEGINTERFERON ALFA-2B-NJFT
     Dosage: 450 MICROGRAM, Q2W
     Route: 064
     Dates: start: 2022
  6. BESREMI [Suspect]
     Active Substance: ROPEGINTERFERON ALFA-2B-NJFT
     Dosage: 500 MICROGRAM, Q2W
     Route: 064
     Dates: start: 2022
  7. HYDROXYUREA [Concomitant]
     Active Substance: HYDROXYUREA
     Indication: Product used for unknown indication
     Route: 065

REACTIONS (2)
  - Bradycardia foetal [Recovered/Resolved]
  - Foetal exposure during pregnancy [Recovered/Resolved]

NARRATIVE: CASE EVENT DATE: 20221201
